FAERS Safety Report 9641666 (Version 1)
Quarter: 2013Q4

REPORT INFORMATION
  Report Type: Spontaneous
  Country: FR (occurrence: FR)
  Receive Date: 20131023
  Receipt Date: 20131023
  Transmission Date: 20140711
  Serious: Yes (Other)
  Sender: FDA-Public Use
  Company Number: FR-ELI_LILLY_AND_COMPANY-FR201310003531

PATIENT
  Age: 73 Year
  Sex: Male

DRUGS (9)
  1. ALIMTA [Suspect]
     Dosage: 1020 MG, UNKNOWN
     Route: 042
     Dates: start: 20130814, end: 20130814
  2. CISPLATINE [Suspect]
     Dosage: 153 MG, UNKNOWN
     Route: 042
     Dates: start: 20130814, end: 20130814
  3. ALLOPURINOL [Concomitant]
     Dosage: 100 MG, QD
     Route: 048
  4. COLCHICINE [Concomitant]
     Dosage: 1 MG, PRN
     Route: 048
  5. INEXIUM                            /01479302/ [Concomitant]
     Dosage: 20 MG, QD
  6. LEVOTHYROX [Concomitant]
     Dosage: 75 UG, QD
  7. MOVICOL                            /01625101/ [Concomitant]
     Dosage: 2 DAILY IF NEEDED
     Route: 048
  8. DOLIPRANE [Concomitant]
     Dosage: 1000 MG, IN 6 HOURS PRN
  9. STILNOX [Concomitant]
     Dosage: 10 MG, DAILY PRN

REACTIONS (2)
  - Xerophthalmia [Recovered/Resolved]
  - Rash maculo-papular [Recovered/Resolved]
